FAERS Safety Report 6290600-9 (Version None)
Quarter: 2009Q3

REPORT INFORMATION
  Report Type: 
  Country: None (occurrence: None)
  Receive Date: 20090728
  Receipt Date: 20090728
  Transmission Date: 20100115
  Serious: Yes (Life-Threatening)
  Sender: FDA-Public Use
  Company Number: None

PATIENT
  Age: 48 Year
  Sex: Female
  Weight: 74.3899 kg

DRUGS (1)
  1. PROTONIX [Suspect]

REACTIONS (12)
  - BODY TEMPERATURE INCREASED [None]
  - CHEST DISCOMFORT [None]
  - COUGH [None]
  - ERYTHEMA [None]
  - FEELING COLD [None]
  - HEART RATE INCREASED [None]
  - LIP SWELLING [None]
  - PALPITATIONS [None]
  - PRURITUS [None]
  - SKIN DISORDER [None]
  - TREMOR [None]
  - URTICARIA [None]
